FAERS Safety Report 6884148-8 (Version None)
Quarter: 2010Q3

REPORT INFORMATION
  Report Type: 
  Country: None (occurrence: None)
  Receive Date: 20100729
  Receipt Date: 20100716
  Transmission Date: 20110219
  Serious: Yes (Hospitalization)
  Sender: FDA-Public Use
  Company Number: NL-WYE-G06414310

PATIENT
  Age: 65 Year
  Sex: Female
  Weight: 63 kg

DRUGS (3)
  1. EFFEXOR [Suspect]
     Indication: DEPRESSION
     Dosage: 150 MG IN THE MORNING AND 75 MG IN THE EVENING
     Route: 048
  2. BROMAZEPAM [Concomitant]
  3. PROMETAZIN [Concomitant]

REACTIONS (2)
  - OVARIAN CANCER METASTATIC [None]
  - VOMITING [None]
